FAERS Safety Report 5846047-X (Version None)
Quarter: 2008Q3

REPORT INFORMATION
  Report Type: 
  Country: None (occurrence: None)
  Receive Date: 20080813
  Receipt Date: 20080730
  Transmission Date: 20090109
  Serious: Yes (Death)
  Sender: FDA-Public Use
  Company Number: MC200800340

PATIENT
  Sex: Male

DRUGS (3)
  1. ANGIOMAX [Suspect]
     Indication: CAROTID ARTERY STENT INSERTION
     Dates: start: 20080730, end: 20080730
  2. ASPIRIN [Concomitant]
  3. PLAVIX [Concomitant]

REACTIONS (3)
  - BRAIN DEATH [None]
  - HAEMODYNAMIC INSTABILITY [None]
  - HAEMORRHAGE INTRACRANIAL [None]
